FAERS Safety Report 4557756-7 (Version None)
Quarter: 2005Q1

REPORT INFORMATION
  Report Type: 
  Country: None (occurrence: None)
  Receive Date: 20050103
  Receipt Date: 20040806
  Transmission Date: 20050727
  Serious: Yes (Other)
  Sender: FDA-Public Use
  Company Number: 2004UW16779

PATIENT
  Age: 72 Year
  Sex: Male
  Weight: 72.5755 kg

DRUGS (5)
  1. CRESTOR [Suspect]
     Indication: BLOOD CHOLESTEROL INCREASED
     Dosage: 20 MG PO
     Route: 048
     Dates: end: 20040804
  2. CORGARD [Concomitant]
  3. MEVACOR [Concomitant]
  4. ZOCOR [Concomitant]
  5. LIPITOR [Concomitant]

REACTIONS (2)
  - BLOOD CHOLESTEROL INCREASED [None]
  - BLOOD TRIGLYCERIDES INCREASED [None]
